FAERS Safety Report 9295012 (Version 1)
Quarter: 2013Q2

REPORT INFORMATION
  Report Type: Spontaneous
  Country: SG (occurrence: SG)
  Receive Date: 20130517
  Receipt Date: 20130517
  Transmission Date: 20140414
  Serious: Yes (Other)
  Sender: FDA-Public Use
  Company Number: SG-PFIZER INC-2013147239

PATIENT
  Age: 53 Year
  Sex: Female
  Weight: 53.6 kg

DRUGS (6)
  1. CARBOPLATIN [Suspect]
     Indication: OVARIAN CANCER RECURRENT
     Dosage: 570 MG, CYCLIC
     Route: 042
     Dates: start: 20121124, end: 20121124
  2. CARBOPLATIN [Suspect]
     Dosage: UNK
     Dates: start: 20121224
  3. DEXAMETHASONE [Concomitant]
     Indication: ANTIEMETIC SUPPORTIVE CARE
     Dosage: 8 MG, CYCLIC
     Route: 042
     Dates: start: 20121112
  4. DIPHENHYDRAMINE [Concomitant]
     Indication: HYPERSENSITIVITY
     Dosage: 25 MG, UNK
     Route: 042
     Dates: start: 20121130
  5. GEMCITABINE [Concomitant]
     Indication: OVARIAN CANCER RECURRENT
     Dosage: 800 MG, CYCLIC
     Route: 042
     Dates: start: 20121112
  6. GRANISETRON [Concomitant]
     Indication: ANTIEMETIC SUPPORTIVE CARE
     Dosage: 3 MG, CYCLIC
     Route: 042
     Dates: start: 20121112

REACTIONS (3)
  - Flushing [Recovered/Resolved]
  - Vomiting [Recovered/Resolved]
  - Blood pressure decreased [Recovered/Resolved]
